FAERS Safety Report 21945143 (Version 3)
Quarter: 2023Q1

REPORT INFORMATION
  Report Type: Report from Study
  Country: CA (occurrence: CA)
  Receive Date: 20230202
  Receipt Date: 20230227
  Transmission Date: 20230418
  Serious: Yes (Hospitalization, Other)
  Sender: FDA-Public Use
  Company Number: CA-HLS-202300226

PATIENT
  Age: 68 Year
  Sex: Male

DRUGS (8)
  1. CLOZARIL [Suspect]
     Active Substance: CLOZAPINE
     Indication: Schizophrenia
     Route: 048
     Dates: start: 19930315
  2. CLOZARIL [Suspect]
     Active Substance: CLOZAPINE
     Indication: Schizophrenia
     Dosage: 150 MG HS
     Route: 048
  3. EPIVAL [Concomitant]
     Active Substance: DIVALPROEX SODIUM
     Indication: Schizophrenia
     Dosage: 100 MG DAILY
     Route: 048
  4. FRAGMIN [Concomitant]
     Active Substance: DALTEPARIN SODIUM
     Indication: Product used for unknown indication
     Dosage: 5000 UNITS/DAY
     Route: 058
     Dates: start: 20230126, end: 20230206
  5. PANTOPRAZOLE SODIUM [Concomitant]
     Active Substance: PANTOPRAZOLE SODIUM
     Indication: Gastrooesophageal reflux disease
     Dosage: 40MG DAILY
     Route: 048
  6. ACETAMINOPHEN [Concomitant]
     Active Substance: ACETAMINOPHEN
     Indication: Pyrexia
     Dosage: 1000 MG WHEN NEEDED
     Route: 048
     Dates: start: 20230126, end: 20230206
  7. ATIVAN [Concomitant]
     Active Substance: LORAZEPAM
     Indication: Insomnia
     Dosage: 1 MG AT BED TIME
     Route: 048
  8. CRESTOR [Concomitant]
     Active Substance: ROSUVASTATIN CALCIUM
     Indication: Product used for unknown indication
     Dosage: 40 MG EVERY DAY
     Route: 048

REACTIONS (8)
  - Neutrophil count decreased [Recovered/Resolved]
  - Acute kidney injury [Recovered/Resolved]
  - Anaemia of chronic disease [Recovered/Resolved]
  - COVID-19 [Unknown]
  - Hypokalaemia [Recovered/Resolved]
  - Hyponatraemia [Recovered/Resolved]
  - Acute myocardial infarction [Unknown]
  - Thrombocytopenia [Recovered/Resolved]

NARRATIVE: CASE EVENT DATE: 20230131
